FAERS Safety Report 10499194 (Version 1)
Quarter: 2014Q4

REPORT INFORMATION
  Report Type: Spontaneous
  Country: US (occurrence: US)
  Receive Date: 20141006
  Receipt Date: 20141006
  Transmission Date: 20150528
  Serious: No
  Sender: FDA-Public Use
  Company Number: US-AMGEN INC.-USASP2014025840

PATIENT

DRUGS (2)
  1. HALAVEN [Concomitant]
     Active Substance: ERIBULIN MESYLATE
  2. XGEVA [Suspect]
     Active Substance: DENOSUMAB
     Indication: PRODUCT USED FOR UNKNOWN INDICATION
     Dosage: UNK
     Route: 065

REACTIONS (5)
  - Hyperhidrosis [Unknown]
  - Fatigue [Unknown]
  - Peripheral swelling [Unknown]
  - Red blood cell count abnormal [Unknown]
  - Feeling abnormal [Unknown]
